FAERS Safety Report 6197062-0 (Version None)
Quarter: 2009Q2

REPORT INFORMATION
  Report Type: 
  Country: None (occurrence: None)
  Receive Date: 20090520
  Receipt Date: 20090515
  Transmission Date: 20091009
  Serious: Yes (Other)
  Sender: FDA-Public Use
  Company Number: JP-SANOFI-SYNTHELABO-A01200904407

PATIENT
  Age: 15 Year
  Sex: Female

DRUGS (2)
  1. MYSLEE [Concomitant]
     Indication: INSOMNIA
     Dosage: 5 MG DAILY AND ADDITIONAL 5 MG AS NEEDED
     Route: 048
     Dates: start: 20090403
  2. MYSLEE [Suspect]
     Indication: INTENTIONAL OVERDOSE
     Dosage: 6 OR MORE TABLETS ONCE
     Route: 048
     Dates: start: 20090422, end: 20090422

REACTIONS (3)
  - DELIRIUM [None]
  - DRUG LEVEL INCREASED [None]
  - INTENTIONAL OVERDOSE [None]
